FAERS Safety Report 6359542-4 (Version None)
Quarter: 2009Q3

REPORT INFORMATION
  Report Type: 
  Country: None (occurrence: None)
  Receive Date: 20090917
  Receipt Date: 20090908
  Transmission Date: 20100115
  Serious: Yes (Hospitalization)
  Sender: FDA-Public Use
  Company Number: CN-JNJFOC-20090901893

PATIENT
  Age: 12 Month
  Sex: Male
  Weight: 10 kg

DRUGS (2)
  1. IBUPROFEN [Suspect]
     Route: 048
  2. IBUPROFEN [Suspect]
     Indication: PYREXIA
     Route: 048

REACTIONS (4)
  - ACCIDENTAL OVERDOSE [None]
  - DRUG DISPENSING ERROR [None]
  - LIVER FUNCTION TEST ABNORMAL [None]
  - RASH [None]
